FAERS Safety Report 23953743 (Version 1)
Quarter: 2024Q2

REPORT INFORMATION
  Report Type: Report from Study
  Country: US (occurrence: US)
  Receive Date: 20240609
  Receipt Date: 20240609
  Transmission Date: 20240715
  Serious: Yes (Other)
  Sender: FDA-Public Use
  Company Number: US-AUROBINDO-AUR-APL-2024-027065

PATIENT
  Age: 52 Year
  Sex: Male

DRUGS (10)
  1. DECITABINE [Suspect]
     Active Substance: DECITABINE
     Indication: Cutaneous T-cell lymphoma
     Dosage: 20 MILLIGRAM/SQ. METER ON DAYS 1 TO 3
     Route: 065
  2. DECITABINE [Suspect]
     Active Substance: DECITABINE
     Indication: Tumour flare
  3. PRALATREXATE [Suspect]
     Active Substance: PRALATREXATE
     Indication: Cutaneous T-cell lymphoma
     Dosage: UNK
     Route: 065
  4. PRALATREXATE [Suspect]
     Active Substance: PRALATREXATE
     Indication: Tumour flare
  5. GEMCITABINE [Suspect]
     Active Substance: GEMCITABINE
     Indication: Cutaneous T-cell lymphoma
     Dosage: UNK
     Route: 065
  6. GEMCITABINE [Suspect]
     Active Substance: GEMCITABINE
     Indication: Tumour flare
  7. ROMIDEPSIN [Suspect]
     Active Substance: ROMIDEPSIN
     Indication: Cutaneous T-cell lymphoma
     Dosage: UNK
     Route: 065
  8. ROMIDEPSIN [Suspect]
     Active Substance: ROMIDEPSIN
     Indication: Tumour flare
  9. PEMBROLIZUMAB [Suspect]
     Active Substance: PEMBROLIZUMAB
     Indication: Cutaneous T-cell lymphoma
     Dosage: 200 MILLIGRAM ON DAY 8
     Route: 065
  10. PEMBROLIZUMAB [Suspect]
     Active Substance: PEMBROLIZUMAB
     Indication: Tumour flare

REACTIONS (1)
  - Drug ineffective [Unknown]
